FAERS Safety Report 8247451-5 (Version None)
Quarter: 2012Q1

REPORT INFORMATION
  Report Type: 
  Country: None (occurrence: None)
  Receive Date: 20120330
  Receipt Date: 20120326
  Transmission Date: 20120608
  Serious: Yes (Life-Threatening, Hospitalization)
  Sender: FDA-Public Use
  Company Number: DE-SANOFI-AVENTIS-2012SA020730

PATIENT
  Age: 28 Year
  Sex: Female

DRUGS (3)
  1. HUMALOG [Concomitant]
     Route: 065
  2. LANTUS [Suspect]
     Route: 058
     Dates: start: 20120301, end: 20120301
  3. ANTIBIOTICS [Concomitant]
     Route: 065

REACTIONS (4)
  - CARDIAC FAILURE [None]
  - OEDEMA [None]
  - HYPERGLYCAEMIA [None]
  - DYSPNOEA [None]
